FAERS Safety Report 13612056 (Version 1)
Quarter: 2017Q2

REPORT INFORMATION
  Report Type: Spontaneous
  Country: US (occurrence: US)
  Receive Date: 20170605
  Receipt Date: 20170605
  Transmission Date: 20170830
  Serious: Yes (Other)
  Sender: FDA-Public Use
  Company Number: None

PATIENT
  Age: 68 Year
  Sex: Male

DRUGS (8)
  1. FLUDROCORT [Concomitant]
  2. MIRALAX [Concomitant]
     Active Substance: POLYETHYLENE GLYCOL 3350
  3. MEGACE [Concomitant]
     Active Substance: MEGESTROL ACETATE
  4. ONDANSETRON [Concomitant]
     Active Substance: ONDANSETRON
  5. HYDROCO/APAP [Concomitant]
     Active Substance: ACETAMINOPHEN\HYDROCODONE
  6. PROCHLORPER [Concomitant]
  7. XARELTO [Concomitant]
     Active Substance: RIVAROXABAN
  8. LONSURF [Suspect]
     Active Substance: TIPIRACIL HYDROCHLORIDE\TRIFLURIDINE
     Indication: COLON CANCER
     Route: 048
     Dates: start: 20170511

REACTIONS (5)
  - Red blood cell count decreased [None]
  - Fatigue [None]
  - White blood cell count decreased [None]
  - Coccydynia [None]
  - Platelet count decreased [None]
